FAERS Safety Report 8808605 (Version 1)
Quarter: 2012Q4

REPORT INFORMATION
  Report Type: Spontaneous
  Country: US (occurrence: None)
  Receive Date: 20120920
  Receipt Date: 20120920
  Transmission Date: 20130627
  Serious: Yes (Other)
  Sender: FDA-Public Use
  Company Number: None

PATIENT
  Age: 27 Year
  Sex: Female
  Weight: 104.33 kg

DRUGS (1)
  1. DESOGEN [Suspect]

REACTIONS (2)
  - Myocardial infarction [None]
  - Blood disorder [None]
